FAERS Safety Report 4384954-8 (Version None)
Quarter: 2004Q2

REPORT INFORMATION
  Report Type: 
  Country: None (occurrence: None)
  Receive Date: 20040622
  Receipt Date: 20040621
  Transmission Date: 20050107
  Serious: Yes (Death)
  Sender: FDA-Public Use
  Company Number: 04-06-0884

PATIENT
  Age: 80 Year
  Sex: Male

DRUGS (1)
  1. CLOZAPINE [Suspect]
     Indication: ABNORMAL BEHAVIOUR
     Dosage: 50-200MG QD ORAL
     Route: 048
     Dates: start: 20000701, end: 20040501

REACTIONS (1)
  - PNEUMONIA [None]
